FAERS Safety Report 16504990 (Version 1)
Quarter: 2019Q3

REPORT INFORMATION
  Report Type: Spontaneous
  Country: US (occurrence: US)
  Receive Date: 20190701
  Receipt Date: 20190701
  Transmission Date: 20191004
  Serious: No
  Sender: FDA-Public Use
  Company Number: US-PFM-2019-02226

PATIENT
  Age: 5 Month
  Sex: Female
  Weight: 6.9 kg

DRUGS (1)
  1. HEMANGEOL [Suspect]
     Active Substance: PROPRANOLOL HYDROCHLORIDE
     Indication: HAEMANGIOMA
     Dosage: 2.8 ML, BID (2/DAY)
     Route: 048
     Dates: start: 201811

REACTIONS (1)
  - Cardiac murmur [Not Recovered/Not Resolved]
